FAERS Safety Report 9165312 (Version 3)
Quarter: 2013Q2

REPORT INFORMATION
  Report Type: Spontaneous
  Country: US (occurrence: US)
  Receive Date: 20130315
  Receipt Date: 20130509
  Transmission Date: 20140414
  Serious: Yes (Hospitalization, Other)
  Sender: FDA-Public Use
  Company Number: US-ELI_LILLY_AND_COMPANY-US201303002268

PATIENT
  Age: 68 Year
  Sex: Female
  Weight: 80.54 kg

DRUGS (17)
  1. FORTEO [Suspect]
     Indication: OSTEOPOROSIS
     Dosage: 20 UG, QD
     Dates: start: 201111
  2. PRILOSEC [Concomitant]
     Dosage: UNK
  3. PREDNISONE [Concomitant]
     Dosage: UNK
  4. ZOLOFT [Concomitant]
     Dosage: UNK
  5. ZETIA [Concomitant]
     Dosage: UNK
  6. HYDRALAZINE [Concomitant]
     Dosage: UNK
  7. NORVASC [Concomitant]
     Dosage: UNK
  8. COUMADIN [Concomitant]
     Dosage: UNK
  9. IRON [Concomitant]
     Dosage: UNK
  10. ISOSORBIDE [Concomitant]
     Dosage: UNK
  11. SODIUM BICARBONATE [Concomitant]
     Dosage: UNK
  12. ASA [Concomitant]
     Dosage: UNK
  13. COREG [Concomitant]
     Dosage: UNK
  14. LASIX [Concomitant]
     Dosage: UNK
  15. LANTUS [Concomitant]
     Dosage: UNK
  16. NOVOLOG [Concomitant]
     Dosage: UNK
  17. OMEGA 3 FISH OIL [Concomitant]
     Dosage: UNK

REACTIONS (7)
  - Tibia fracture [Not Recovered/Not Resolved]
  - Rib fracture [Not Recovered/Not Resolved]
  - Pulmonary contusion [Not Recovered/Not Resolved]
  - Splenic rupture [Not Recovered/Not Resolved]
  - Road traffic accident [Not Recovered/Not Resolved]
  - Gait disturbance [Unknown]
  - Memory impairment [Unknown]
